FAERS Safety Report 15192215 (Version 2)
Quarter: 2022Q4

REPORT INFORMATION
  Report Type: Report from Study
  Country: US (occurrence: US)
  Receive Date: 20180724
  Receipt Date: 20221017
  Transmission Date: 20230113
  Serious: Yes (Other)
  Sender: FDA-Public Use
  Company Number: US-SHIRE-US201827699

PATIENT
  Sex: Male

DRUGS (1)
  1. HUMAN IMMUNOGLOBULIN G\HYALURONIDASE RECOMBINANT HUMAN [Suspect]
     Active Substance: HUMAN IMMUNOGLOBULIN G\HYALURONIDASE RECOMBINANT HUMAN
     Indication: Immunodeficiency common variable
     Dosage: UNK
     Route: 065

REACTIONS (1)
  - Sinusitis [Unknown]
